FAERS Safety Report 24705236 (Version 1)
Quarter: 2024Q4

REPORT INFORMATION
  Report Type: Spontaneous
  Country: CN (occurrence: CN)
  Receive Date: 20241206
  Receipt Date: 20241206
  Transmission Date: 20250114
  Serious: Yes (Hospitalization)
  Sender: ACCORD
  Company Number: CN-MLMSERVICE-20241122-PI264756-00232-1

PATIENT
  Age: 62 Year
  Sex: Male

DRUGS (14)
  1. AZACITIDINE [Suspect]
     Active Substance: AZACITIDINE
     Indication: Immunosuppressant drug therapy
     Dates: start: 20230505, end: 20230511
  2. CELLCEPT [Suspect]
     Active Substance: MYCOPHENOLATE MOFETIL
     Indication: Prophylaxis against graft versus host disease
     Dosage: ON DAY -4 BEFORE TRANSPLANTATION
     Dates: start: 20230723
  3. CYCLOPHOSPHAMIDE [Suspect]
     Active Substance: CYCLOPHOSPHAMIDE
     Indication: Bone marrow conditioning regimen
     Dosage: 2 G/M2
     Dates: start: 20230718, end: 20230719
  4. CYCLOSPORINE [Suspect]
     Active Substance: CYCLOSPORINE
     Indication: Prophylaxis against graft versus host disease
     Dosage: ON DAY -4 BEFORE TRANSPLANTATION
     Dates: start: 20230723
  5. CYTARABINE [Suspect]
     Active Substance: CYTARABINE
     Indication: Bone marrow conditioning regimen
     Dosage: 7.5 G/M^2
     Dates: start: 20230718, end: 20230722
  6. FLUDARABINE [Suspect]
     Active Substance: FLUDARABINE PHOSPHATE
     Indication: Bone marrow conditioning regimen
     Dates: start: 20230718, end: 20230722
  7. RUXOLITINIB [Suspect]
     Active Substance: RUXOLITINIB
     Indication: Primary myelofibrosis
  8. ASPIRIN [Concomitant]
     Active Substance: ASPIRIN
     Indication: Essential thrombocythaemia
     Dates: start: 20201016
  9. HYDROXYUREA [Concomitant]
     Active Substance: HYDROXYUREA
     Indication: Essential thrombocythaemia
     Dates: start: 20201016
  10. GANCICLOVIR [Concomitant]
     Active Substance: GANCICLOVIR
     Indication: Infection prophylaxis
     Dates: start: 20230718
  11. MICAFUNGIN [Concomitant]
     Active Substance: MICAFUNGIN SODIUM
     Indication: Infection prophylaxis
     Dates: start: 20230718
  12. VANCOMYCIN [Concomitant]
     Active Substance: VANCOMYCIN
     Indication: Infection prophylaxis
     Dates: start: 20230718
  13. AZACITIDINE [Suspect]
     Active Substance: AZACITIDINE
     Indication: Immunosuppressant drug therapy
     Dates: start: 20230531, end: 20230606
  14. AZACITIDINE [Suspect]
     Active Substance: AZACITIDINE
     Indication: Immunosuppressant drug therapy
     Dates: start: 20230628, end: 20230703

REACTIONS (4)
  - Viral haemorrhagic cystitis [Recovered/Resolved]
  - Respiratory syncytial virus infection [Recovered/Resolved]
  - BK virus infection [Recovered/Resolved]
  - Infection reactivation [Recovered/Resolved]

NARRATIVE: CASE EVENT DATE: 20230810
